FAERS Safety Report 4930688-8 (Version None)
Quarter: 2006Q1

REPORT INFORMATION
  Report Type: 
  Country: None (occurrence: None)
  Receive Date: 20060227
  Receipt Date: 20060217
  Transmission Date: 20060701
  Serious: Yes (Hospitalization, Other)
  Sender: FDA-Public Use
  Company Number: 2006024968

PATIENT
  Age: 72 Year
  Sex: Female
  Weight: 77.1115 kg

DRUGS (12)
  1. LIPITOR [Suspect]
     Indication: BLOOD CHOLESTEROL INCREASED
     Dosage: 10 MG (10 MG, 1 IN 1D)
     Dates: start: 19970101, end: 19970101
  2. BAYCOL [Suspect]
     Indication: BLOOD CHOLESTEROL INCREASED
  3. PRAVACHOL [Suspect]
     Indication: BLOOD CHOLESTEROL INCREASED
  4. VYTORIN [Suspect]
     Indication: BLOOD CHOLESTEROL INCREASED
  5. ALL OTHER THERAPEUTIC PRODUCTS (ALL OTHER THERAPEUTIC PRODUCTS [Suspect]
  6. BAYCOL [Concomitant]
  7. PRAVACHOL (PRAVASTIN SODIUM) [Concomitant]
  8. VYTORIN [Concomitant]
  9. ALL OTHER THERAPEUTIC PRODUCTS (ALL OTHER THERAEUTIC PRODUCTS) [Concomitant]
  10. METOPROLOL (METOPROLOL) [Concomitant]
  11. SYNTHROID [Concomitant]
  12. ASPIRIN [Concomitant]

REACTIONS (5)
  - BODY HEIGHT DECREASED [None]
  - MOBILITY DECREASED [None]
  - MYALGIA [None]
  - MYOCARDIAL INFARCTION [None]
  - WHEELCHAIR USER [None]
